FAERS Safety Report 16181599 (Version 3)
Quarter: 2019Q2

REPORT INFORMATION
  Report Type: Spontaneous
  Country: JP (occurrence: JP)
  Receive Date: 20190410
  Receipt Date: 20190604
  Transmission Date: 20190711
  Serious: Yes (Other)
  Sender: FDA-Public Use
  Company Number: JP-BRISTOL-MYERS SQUIBB COMPANY-BMS-2019-033487

PATIENT
  Age: 80 Year
  Sex: Female

DRUGS (1)
  1. ORENCIA [Suspect]
     Active Substance: ABATACEPT
     Indication: RHEUMATIC DISORDER
     Dosage: UNK, QWK
     Route: 065

REACTIONS (3)
  - Incision site swelling [Unknown]
  - Subdural haematoma [Unknown]
  - Post procedural fever [Unknown]
